FAERS Safety Report 12999011 (Version 1)
Quarter: 2016Q4

REPORT INFORMATION
  Report Type: Spontaneous
  Country: US (occurrence: US)
  Receive Date: 20161205
  Receipt Date: 20161205
  Transmission Date: 20170207
  Serious: Yes (Other)
  Sender: FDA-Public Use
  Company Number: US-SA-2016SA219504

PATIENT
  Age: 68 Year
  Sex: Female
  Weight: 73.9 kg

DRUGS (37)
  1. VITAMIN C [Concomitant]
     Active Substance: ASCORBIC ACID
     Route: 065
  2. LEVOTHYROXINE. [Concomitant]
     Active Substance: LEVOTHYROXINE
     Route: 065
  3. TETANUS TOXOID/DIPHTHERIA TOXOID/HEPATITIS B VACCINE/POLIOMYELITIS VACCINE (INACTIVATED)/ACELLULAR P [Concomitant]
     Route: 065
  4. CYMBALTA [Concomitant]
     Active Substance: DULOXETINE HYDROCHLORIDE
     Route: 065
  5. PROTONIX [Concomitant]
     Active Substance: PANTOPRAZOLE SODIUM
     Route: 065
  6. ISOPROPANOL [Concomitant]
     Active Substance: ISOPROPANOLAMINE
     Route: 065
  7. TESSALON [Concomitant]
     Active Substance: BENZONATATE
     Route: 065
  8. FLOVENT HFA [Concomitant]
     Active Substance: FLUTICASONE PROPIONATE
     Route: 065
  9. INFLUENZA VACCINE [Concomitant]
     Active Substance: INFLUENZA VIRUS VACCINE
     Route: 065
  10. PLAQUENIL [Concomitant]
     Active Substance: HYDROXYCHLOROQUINE SULFATE
     Route: 065
  11. LUTEIN [Concomitant]
     Active Substance: LUTEIN
     Route: 065
  12. VITAMIN B12 [Concomitant]
     Active Substance: CYANOCOBALAMIN
     Route: 065
  13. COLACE [Concomitant]
     Active Substance: DOCUSATE SODIUM
     Route: 065
  14. VITAMIN B NOS/ASCORBIC ACID/CALCIUM/RETINOL/ZINC/TOCOPHERYL ACETATE/MINERALS NOS/VITAMINS NOS [Concomitant]
     Route: 065
  15. PROLIA [Suspect]
     Active Substance: DENOSUMAB
     Indication: OSTEOPOROSIS
     Route: 058
     Dates: start: 20120611
  16. PROLIA [Suspect]
     Active Substance: DENOSUMAB
     Indication: OSTEOPOROSIS
     Route: 058
     Dates: start: 20121106
  17. SULFASALAZINE. [Concomitant]
     Active Substance: SULFASALAZINE
     Route: 065
  18. QVAR [Concomitant]
     Active Substance: BECLOMETHASONE DIPROPIONATE
     Route: 065
  19. IMMUNOGLOBULIN ZOSTER [Concomitant]
     Route: 065
     Dates: start: 20120423
  20. VITAMIN E [Concomitant]
     Active Substance: .ALPHA.-TOCOPHEROL
     Route: 065
  21. METHOTREXATE. [Concomitant]
     Active Substance: METHOTREXATE
     Route: 065
     Dates: start: 2013
  22. BIOORGANICS CRANBERRY 10000 PLUS [Concomitant]
     Route: 065
  23. ASPIRIN. [Concomitant]
     Active Substance: ASPIRIN
     Route: 065
  24. COLLAGEN [Concomitant]
     Active Substance: COLLAGEN
     Route: 065
  25. GLUCOSAMINE HYDROCHLORIDE [Concomitant]
     Active Substance: GLUCOSAMINE HYDROCHLORIDE
     Route: 065
  26. ZESTRIL [Concomitant]
     Active Substance: LISINOPRIL
     Route: 065
  27. ARAVA [Suspect]
     Active Substance: LEFLUNOMIDE
     Route: 065
     Dates: start: 2012, end: 2016
  28. FOSAMAX [Concomitant]
     Active Substance: ALENDRONATE SODIUM
     Route: 065
  29. VITAMIN D [Concomitant]
     Active Substance: CHOLECALCIFEROL
     Route: 065
  30. FOLVITE [Concomitant]
     Active Substance: FOLIC ACID
     Route: 065
  31. PRINIVIL [Concomitant]
     Active Substance: LISINOPRIL
     Route: 065
  32. MIGRELIEF [Concomitant]
     Route: 065
  33. TOPROL XL [Concomitant]
     Active Substance: METOPROLOL SUCCINATE
     Route: 065
  34. PARAFON FORTE DSC [Concomitant]
     Active Substance: CHLORZOXAZONE
     Route: 065
  35. COENZYME Q10 [Concomitant]
     Active Substance: UBIDECARENONE
     Route: 065
  36. LIPITOR [Concomitant]
     Active Substance: ATORVASTATIN CALCIUM
     Route: 065
  37. PNEUMOCOCCAL CONJUGATE VACCINE [Concomitant]
     Active Substance: PNEUMOCOCCAL VACCINE POLYVALENT
     Route: 065

REACTIONS (38)
  - Myocardial infarction [Not Recovered/Not Resolved]
  - Thrombosis [Not Recovered/Not Resolved]
  - Immunodeficiency [Not Recovered/Not Resolved]
  - Coronary artery disease [Not Recovered/Not Resolved]
  - Migraine [Not Recovered/Not Resolved]
  - Hypersensitivity [Not Recovered/Not Resolved]
  - Cerebrovascular accident [Unknown]
  - Blindness [Not Recovered/Not Resolved]
  - Senile osteoporosis [Not Recovered/Not Resolved]
  - Nausea [Unknown]
  - Memory impairment [Not Recovered/Not Resolved]
  - Rheumatoid arthritis [Not Recovered/Not Resolved]
  - Malaise [Unknown]
  - Dysphagia [Not Recovered/Not Resolved]
  - Fatigue [Not Recovered/Not Resolved]
  - Stress cardiomyopathy [Recovered/Resolved]
  - Drug dependence [Unknown]
  - Influenza like illness [Recovered/Resolved]
  - Joint swelling [Recovering/Resolving]
  - Vision blurred [Unknown]
  - Erythema [Recovering/Resolving]
  - Drug intolerance [Unknown]
  - Migraine with aura [Not Recovered/Not Resolved]
  - Pain in extremity [Not Recovered/Not Resolved]
  - Pulmonary embolism [Not Recovered/Not Resolved]
  - Major depression [Not Recovered/Not Resolved]
  - Hypothyroidism [Not Recovered/Not Resolved]
  - Pain [Not Recovered/Not Resolved]
  - Alopecia [Unknown]
  - Aortic arteriosclerosis [Not Recovered/Not Resolved]
  - Chronic obstructive pulmonary disease [Not Recovered/Not Resolved]
  - Anxiety [Not Recovered/Not Resolved]
  - Fibromyalgia [Unknown]
  - Hand deformity [Not Recovered/Not Resolved]
  - Essential hypertension [Not Recovered/Not Resolved]
  - Headache [Not Recovered/Not Resolved]
  - Irritable bowel syndrome [Recovered/Resolved]
  - Paraesthesia [Not Recovered/Not Resolved]

NARRATIVE: CASE EVENT DATE: 20160303
